FAERS Safety Report 17046058 (Version 1)
Quarter: 2019Q4

REPORT INFORMATION
  Report Type: Report from Study
  Country: US (occurrence: US)
  Receive Date: 20191119
  Receipt Date: 20191119
  Transmission Date: 20200122
  Serious: Yes (Other)
  Sender: FDA-Public Use
  Company Number: US-ROCHE-2467839

PATIENT
  Age: 60 Year
  Sex: Female
  Weight: 72.64 kg

DRUGS (1)
  1. OCREVUS [Suspect]
     Active Substance: OCRELIZUMAB
     Indication: RELAPSING MULTIPLE SCLEROSIS
     Dosage: NEXT DATES OF ADMINISTRATION: 29/OCT/2018, 29/APR/2019, 15/OCT2019, 15/OCT/2019?ANTICIPATED DATE OF
     Route: 042
     Dates: start: 201710

REACTIONS (2)
  - Papilloma viral infection [Not Recovered/Not Resolved]
  - Smear cervix abnormal [Unknown]

NARRATIVE: CASE EVENT DATE: 201807
